FAERS Safety Report 11201608 (Version 1)
Quarter: 2015Q2

REPORT INFORMATION
  Report Type: Spontaneous
  Country: GB (occurrence: GB)
  Receive Date: 20150619
  Receipt Date: 20150619
  Transmission Date: 20150821
  Serious: Yes (Other)
  Sender: FDA-Public Use
  Company Number: GB-MERCK-1506GBR008446

PATIENT
  Age: 77 Year
  Sex: Male
  Weight: 80 kg

DRUGS (12)
  1. BENDROFLUMETHIAZIDE [Suspect]
     Active Substance: BENDROFLUMETHIAZIDE
  2. DOXAZOSIN [Suspect]
     Active Substance: DOXAZOSIN\DOXAZOSIN MESYLATE
  3. PROSCAR [Suspect]
     Active Substance: FINASTERIDE
  4. LANSOPRAZOLE. [Suspect]
     Active Substance: LANSOPRAZOLE
  5. APIXABAN [Suspect]
     Active Substance: APIXABAN
  6. CANAGLIFLOZIN [Suspect]
     Active Substance: CANAGLIFLOZIN
     Indication: TYPE 2 DIABETES MELLITUS
     Route: 048
     Dates: start: 20150508, end: 20150604
  7. LOPERAMIDE HYDROCHLORIDE. [Suspect]
     Active Substance: LOPERAMIDE HYDROCHLORIDE
  8. ZOCOR [Suspect]
     Active Substance: SIMVASTATIN
  9. LOSORTAN POTASSIUM [Suspect]
     Active Substance: LOSARTAN POTASSIUM
  10. SUKKARTO [Suspect]
     Active Substance: METFORMIN HYDROCHLORIDE
  11. ATENOLOL. [Suspect]
     Active Substance: ATENOLOL
  12. CLOPIDOGREL [Concomitant]
     Active Substance: CLOPIDOGREL BISULFATE
     Dates: end: 20150528

REACTIONS (7)
  - Fasciitis [Not Recovered/Not Resolved]
  - Diabetes mellitus inadequate control [Not Recovered/Not Resolved]
  - Drug interaction [Unknown]
  - Amnesia [Not Recovered/Not Resolved]
  - Muscle spasms [Not Recovered/Not Resolved]
  - Blood glucose increased [Not Recovered/Not Resolved]
  - Confusional state [Not Recovered/Not Resolved]

NARRATIVE: CASE EVENT DATE: 20150521
